FAERS Safety Report 10638090 (Version 1)
Quarter: 2014Q4

REPORT INFORMATION
  Report Type: Spontaneous
  Country: FR (occurrence: FR)
  Receive Date: 20141208
  Receipt Date: 20141208
  Transmission Date: 20150529
  Serious: Yes (Hospitalization)
  Sender: FDA-Public Use
  Company Number: FR-PFIZER INC-2014333371

PATIENT
  Age: 42 Year
  Sex: Female

DRUGS (12)
  1. MEDROL [Suspect]
     Active Substance: METHYLPREDNISOLONE
     Dosage: 100 MG, DAILY, CYCLIC
     Route: 048
     Dates: start: 201407
  2. ENDOXAN [Suspect]
     Active Substance: CYCLOPHOSPHAMIDE
     Dosage: 900 MG, CYCLIC
     Route: 041
     Dates: start: 20140806
  3. ZOPHREN [Suspect]
     Active Substance: ONDANSETRON
     Indication: PREMEDICATION
     Dosage: 1 DF (8 MG/4 ML), DAILY, CYCLIC
     Route: 042
     Dates: start: 20140625
  4. TAXOTERE [Suspect]
     Active Substance: DOCETAXEL
     Dosage: 120 MG, DAILY, CYCLIC
     Route: 041
     Dates: start: 201407
  5. ENDOXAN [Suspect]
     Active Substance: CYCLOPHOSPHAMIDE
     Dosage: 936 MG ONCE DAILY, CYCLIC
     Route: 041
     Dates: start: 201407
  6. MEDROL [Suspect]
     Active Substance: METHYLPREDNISOLONE
     Dosage: 100 MG, DAILY, CYCLIC
     Route: 048
     Dates: start: 201408
  7. ZOPHREN [Suspect]
     Active Substance: ONDANSETRON
     Dosage: 1 DF (8 MG/4 ML), DAILY, CYCLIC
     Route: 042
     Dates: start: 201407
  8. TAXOTERE [Suspect]
     Active Substance: DOCETAXEL
     Dosage: 120 MG, DAILY, CYCLIC
     Route: 041
     Dates: start: 201408
  9. ENDOXAN [Suspect]
     Active Substance: CYCLOPHOSPHAMIDE
     Indication: BREAST CANCER
     Dosage: 936 MG ONCE DAILY, CYCLIC
     Route: 041
     Dates: start: 20140625
  10. ZOPHREN [Suspect]
     Active Substance: ONDANSETRON
     Dosage: 1 DF (8 MG/4 ML), DAILY, CYCLIC
     Route: 042
     Dates: start: 201408
  11. MEDROL [Suspect]
     Active Substance: METHYLPREDNISOLONE
     Indication: PREMEDICATION
     Dosage: 100 MG, DAILY, CYCLIC
     Route: 048
     Dates: start: 20140624, end: 20140626
  12. TAXOTERE [Suspect]
     Active Substance: DOCETAXEL
     Indication: BREAST CANCER
     Dosage: 120 MG, DAILY, CYCLIC
     Route: 041
     Dates: start: 20140625

REACTIONS (4)
  - Headache [Recovered/Resolved]
  - Paraesthesia [Unknown]
  - Vision blurred [Recovered/Resolved]
  - Pruritus [Recovered/Resolved]

NARRATIVE: CASE EVENT DATE: 20140625
